FAERS Safety Report 14663997 (Version 1)
Quarter: 2018Q1

REPORT INFORMATION
  Report Type: Spontaneous
  Country: IL (occurrence: IL)
  Receive Date: 20180318
  Receipt Date: 20180318
  Transmission Date: 20180509
  Serious: Yes (Disabling)
  Sender: FDA-Public Use
  Company Number: None

PATIENT
  Age: 90 Year
  Sex: Female
  Weight: 60 kg

DRUGS (10)
  1. ACTONEL [Concomitant]
     Active Substance: RISEDRONATE SODIUM
  2. CARTIA XT [Concomitant]
     Active Substance: DILTIAZEM HYDROCHLORIDE
  3. VABEN [Concomitant]
     Active Substance: OXAZEPAM
  4. PROLIA [Suspect]
     Active Substance: DENOSUMAB
     Indication: OSTEOPOROSIS
     Dosage: ?          OTHER FREQUENCY:EVERY 6 MONTHS;?
     Route: 030
     Dates: start: 20171210
  5. CALTRATE [Concomitant]
     Active Substance: CALCIUM CARBONATE
  6. BONDORMIN [Concomitant]
     Active Substance: BROTIZOLAM
  7. NORTILYN [Concomitant]
  8. OMEPRADEX [Concomitant]
     Active Substance: OMEPRAZOLE
  9. PRAVALIP [Concomitant]
  10. NORVASC [Concomitant]
     Active Substance: AMLODIPINE BESYLATE

REACTIONS (6)
  - Cystitis [None]
  - Pain in extremity [None]
  - Arthralgia [None]
  - Back pain [None]
  - Hypertension [None]
  - Blood urine present [None]

NARRATIVE: CASE EVENT DATE: 20180110
